FAERS Safety Report 7788155-2 (Version None)
Quarter: 2011Q3

REPORT INFORMATION
  Report Type: 
  Country: None (occurrence: None)
  Receive Date: 20110929
  Receipt Date: 20110929
  Transmission Date: 20111222
  Serious: No
  Sender: FDA-Public Use
  Company Number: None

PATIENT
  Sex: Male
  Weight: 144 kg

DRUGS (1)
  1. DAPTOMYCIN 720MG CUBIST PHARMACEUTICALS [Suspect]
     Indication: OSTEOMYELITIS
     Dosage: 720MG EVERY 24 HOURS IV
     Route: 042
     Dates: start: 20110819, end: 20110923

REACTIONS (3)
  - EOSINOPHILIC PNEUMONIA [None]
  - PULMONARY OEDEMA [None]
  - PLEURAL EFFUSION [None]
